FAERS Safety Report 4561424-5 (Version None)
Quarter: 2005Q1

REPORT INFORMATION
  Report Type: 
  Country: None (occurrence: None)
  Receive Date: 20050121
  Receipt Date: 20050107
  Transmission Date: 20050727
  Serious: Yes (Other)
  Sender: FDA-Public Use
  Company Number: 2005008280

PATIENT
  Sex: Female

DRUGS (16)
  1. NEURONTIN [Suspect]
     Indication: DIABETIC NEUROPATHY
     Dosage: 1800 MG (600 MG, 3 IN 1 D), ORAL
     Route: 048
  2. XANAX [Suspect]
     Indication: PAIN
     Dosage: 0.5 MG
     Dates: start: 19990101
  3. MORPHINE SULFATE [Suspect]
     Indication: PAIN
  4. GABAPENTIN [Suspect]
     Indication: ILL-DEFINED DISORDER
     Dosage: 2400 MG (600 MG, 4 IN 1 D)
     Dates: start: 20041208
  5. MONTELUKAST SODIUM (MONTELUKAST SODIUM) [Concomitant]
  6. THEOPHYLLINE [Concomitant]
  7. UDRAMIL (TRANDOLAPRIL, VERAPAMIL HYDROCHLORIDE) [Concomitant]
  8. INSULIN NOVOLIN 70/30 (INSULIN HUMAN SEMISYNTHETIC, INSULIN ISOPHANE H [Concomitant]
  9. DULOXETINE HYDROCHLORIDE (DULOXETINE HYDROCHLORIDE) [Concomitant]
  10. ORPHENADRINE CITRATE [Concomitant]
  11. FUROSEMIDE (FUROSEMIDE) [Concomitant]
  12. MAGNESIUM HYDROXIDE (MAGNESIUM HYDROXIDE) [Concomitant]
  13. VICODIN [Concomitant]
  14. ISOSORBIDE MONONITRATE [Concomitant]
  15. LISINOPRIL [Concomitant]
  16. ASPIRIN [Concomitant]

REACTIONS (5)
  - CONDITION AGGRAVATED [None]
  - DRUG INEFFECTIVE [None]
  - LUNG DISORDER [None]
  - PAIN [None]
  - TREMOR [None]
